FAERS Safety Report 19474444 (Version 1)
Quarter: 2021Q2

REPORT INFORMATION
  Report Type: Spontaneous
  Country: PT (occurrence: PT)
  Receive Date: 20210630
  Receipt Date: 20210630
  Transmission Date: 20210717
  Serious: Yes (Other)
  Sender: FDA-Public Use
  Company Number: PT-BAYER-2021-165823

PATIENT
  Age: 54 Year
  Sex: Female
  Weight: 76 kg

DRUGS (1)
  1. ULTRAVIST [Suspect]
     Active Substance: IOPROMIDE
     Indication: DIAGNOSTIC PROCEDURE
     Dosage: 1 ML CONTAINS 769 MG OF IOPROMIDE (EQUIVALENT TO 370 MG OF IODINE)
     Route: 042
     Dates: start: 20210617, end: 20210617

REACTIONS (4)
  - Rash [Recovered/Resolved]
  - Eyelid oedema [Recovered/Resolved]
  - Localised oedema [Recovered/Resolved]
  - Miliaria [Recovered/Resolved]

NARRATIVE: CASE EVENT DATE: 20210617
